FAERS Safety Report 18704233 (Version 2)
Quarter: 2021Q1

REPORT INFORMATION
  Report Type: Report from Study
  Country: None (occurrence: BE)
  Receive Date: 20210106
  Receipt Date: 20210106
  Transmission Date: 20210419
  Serious: Yes (Death, Hospitalization)
  Sender: FDA-Public Use
  Company Number: BE-ABBVIE-20K-013-3713989-00

PATIENT
  Age: 84 Year
  Sex: Male
  Weight: 48 kg

DRUGS (4)
  1. DUODOPA [Suspect]
     Active Substance: CARBIDOPA\LEVODOPA
     Dosage: MD=6.5ML, CD=2.3ML/HR DURING 16HRS, ED=2.0ML
     Route: 050
     Dates: start: 20190826, end: 20201229
  2. PROLOPA 125 HBS [Concomitant]
     Indication: PARKINSON^S DISEASE
     Dosage: FORM STRENGTH: 100MG/25MG
     Route: 048
  3. DUODOPA [Suspect]
     Active Substance: CARBIDOPA\LEVODOPA
     Indication: PARKINSON^S DISEASE
     Route: 050
     Dates: start: 20150928, end: 20190826
  4. DUODOPA [Suspect]
     Active Substance: CARBIDOPA\LEVODOPA
     Dosage: MD=6.5ML, CD=2.2ML/HR DURING 16HRS, ED=2.0ML
     Route: 050
     Dates: start: 20201230, end: 202012

REACTIONS (4)
  - Device issue [Recovered/Resolved]
  - Death [Fatal]
  - On and off phenomenon [Unknown]
  - Malaise [Unknown]

NARRATIVE: CASE EVENT DATE: 20201229
